FAERS Safety Report 18093991 (Version 7)
Quarter: 2021Q3

REPORT INFORMATION
  Report Type: Report from Study
  Country: None (occurrence: IL)
  Receive Date: 20200730
  Receipt Date: 20210702
  Transmission Date: 20211014
  Serious: Yes (Hospitalization)
  Sender: FDA-Public Use
  Company Number: IL-ABBVIE-20K-082-3292120-00

PATIENT
  Age: 70 Year
  Sex: Female

DRUGS (5)
  1. SAMBUCOL [Concomitant]
     Active Substance: BRYONIA ALBA ROOT\GELSEMIUM SEMPERVIRENS ROOT\SAMBUCUS NIGRA FLOWERING TOP\SULFUR\ZINC GLUCONATE
     Indication: PRODUCT USED FOR UNKNOWN INDICATION
  2. HUMIRA [Suspect]
     Active Substance: ADALIMUMAB
     Route: 058
  3. HUMIRA [Suspect]
     Active Substance: ADALIMUMAB
     Route: 058
     Dates: start: 2020
  4. CARDILOC [Concomitant]
     Active Substance: BISOPROLOL FUMARATE
     Indication: PRODUCT USED FOR UNKNOWN INDICATION
  5. HUMIRA [Suspect]
     Active Substance: ADALIMUMAB
     Indication: CROHN^S DISEASE
     Route: 058
     Dates: start: 20200113, end: 2020

REACTIONS (28)
  - Memory impairment [Not Recovered/Not Resolved]
  - Finger deformity [Not Recovered/Not Resolved]
  - Diarrhoea [Unknown]
  - Back pain [Not Recovered/Not Resolved]
  - Gait disturbance [Not Recovered/Not Resolved]
  - Depressed mood [Not Recovered/Not Resolved]
  - Anxiety [Unknown]
  - Alopecia [Not Recovered/Not Resolved]
  - Bone pain [Not Recovered/Not Resolved]
  - Cardiac disorder [Unknown]
  - Insomnia [Unknown]
  - Limb discomfort [Unknown]
  - Heart rate decreased [Unknown]
  - Groin pain [Unknown]
  - Increased appetite [Not Recovered/Not Resolved]
  - Hypophagia [Recovering/Resolving]
  - Pain [Not Recovered/Not Resolved]
  - Weight increased [Not Recovered/Not Resolved]
  - Stress [Unknown]
  - Insomnia [Not Recovered/Not Resolved]
  - Heart rate irregular [Not Recovered/Not Resolved]
  - Asthenia [Not Recovered/Not Resolved]
  - Burning sensation [Unknown]
  - Eye pruritus [Not Recovered/Not Resolved]
  - Fatigue [Unknown]
  - Bone loss [Not Recovered/Not Resolved]
  - Confusional state [Unknown]
  - Device issue [Not Recovered/Not Resolved]

NARRATIVE: CASE EVENT DATE: 2020
